FAERS Safety Report 6447356-6 (Version None)
Quarter: 2009Q4

REPORT INFORMATION
  Report Type: 
  Country: None (occurrence: None)
  Receive Date: 20091119
  Receipt Date: 20091110
  Transmission Date: 20100525
  Serious: Yes (Other)
  Sender: FDA-Public Use
  Company Number: US-ELI_LILLY_AND_COMPANY-US200911002523

PATIENT
  Age: 69 Year
  Sex: Male

DRUGS (1)
  1. XIGRIS [Suspect]
     Dates: start: 20091108, end: 20091110

REACTIONS (1)
  - ACCIDENTAL OVERDOSE [None]
